FAERS Safety Report 6184758-X (Version None)
Quarter: 2009Q2

REPORT INFORMATION
  Report Type: 
  Country: None (occurrence: None)
  Receive Date: 20090508
  Receipt Date: 20090506
  Transmission Date: 20091009
  Serious: Yes (Life-Threatening, Other)
  Sender: FDA-Public Use
  Company Number: PHHY2009BR17295

PATIENT
  Age: 7 Year
  Sex: Male

DRUGS (1)
  1. CATAFLAM [Suspect]
     Indication: THROAT IRRITATION
     Dosage: 0.MG PER DROP
     Route: 048

REACTIONS (6)
  - DYSPNOEA [None]
  - HYPERSENSITIVITY [None]
  - NECK MASS [None]
  - PHARYNGEAL OEDEMA [None]
  - PRURITUS GENERALISED [None]
  - RASH ERYTHEMATOUS [None]
